FAERS Safety Report 7309485-4 (Version None)
Quarter: 2011Q1

REPORT INFORMATION
  Report Type: 
  Country: None (occurrence: None)
  Receive Date: 20110223
  Receipt Date: 20110214
  Transmission Date: 20110831
  Serious: Yes (Hospitalization)
  Sender: FDA-Public Use
  Company Number: FR-ASTRAZENECA-2011SE08771

PATIENT
  Age: 44 Year
  Sex: Male

DRUGS (4)
  1. ESMERON [Suspect]
     Indication: INDUCTION OF ANAESTHESIA
     Dosage: ONCE/SINGLE ADMINISTRATION
     Route: 042
     Dates: start: 20110202, end: 20110202
  2. AMIKACIN [Concomitant]
     Indication: UPPER AERODIGESTIVE TRACT INFECTION
     Route: 048
     Dates: start: 20110129, end: 20110201
  3. DIPRIVAN [Suspect]
     Indication: INDUCTION OF ANAESTHESIA
     Dosage: ONCE/SINGLE ADMINISTRATION
     Route: 042
     Dates: start: 20110202, end: 20110202
  4. CLAFORAN [Concomitant]
     Indication: UPPER AERODIGESTIVE TRACT INFECTION
     Dates: start: 20110129, end: 20110201

REACTIONS (3)
  - ANAPHYLACTOID SHOCK [None]
  - GENERALISED ERYTHEMA [None]
  - HYPOTENSION [None]
